FAERS Safety Report 11638135 (Version 1)
Quarter: 2015Q4

REPORT INFORMATION
  Report Type: Spontaneous
  Country: US (occurrence: US)
  Receive Date: 20151016
  Receipt Date: 20151016
  Transmission Date: 20160304
  Serious: No
  Sender: FDA-Public Use
  Company Number: US-INDIVIOR-RB-71487-2014

PATIENT
  Sex: Female

DRUGS (4)
  1. SUBOXONE [Suspect]
     Active Substance: BUPRENORPHINE HYDROCHLORIDE\NALOXONE HYDROCHLORIDE
     Indication: PAIN
     Dosage: 20 MG, DAILY
     Route: 065
     Dates: start: 2011, end: 201305
  2. MARIJUANA [Suspect]
     Active Substance: CANNABIS SATIVA SUBSP. INDICA TOP
     Indication: PAIN
     Dosage: UNK
     Route: 055
     Dates: start: 2011
  3. SUBOXONE [Suspect]
     Active Substance: BUPRENORPHINE HYDROCHLORIDE\NALOXONE HYDROCHLORIDE
     Dosage: TAKING LESS THAN PRESCRIBED
     Route: 065
     Dates: start: 2014
  4. SUBOXONE [Suspect]
     Active Substance: BUPRENORPHINE HYDROCHLORIDE\NALOXONE HYDROCHLORIDE
     Indication: PAIN
     Dosage: 20 MG, DAILY
     Route: 065
     Dates: start: 2014

REACTIONS (5)
  - Product preparation error [Unknown]
  - Off label use [Unknown]
  - Intentional underdose [Unknown]
  - Pain [Unknown]
  - Drug abuse [Unknown]

NARRATIVE: CASE EVENT DATE: 2011
